FAERS Safety Report 5497376-3 (Version None)
Quarter: 2007Q4

REPORT INFORMATION
  Report Type: 
  Country: None (occurrence: None)
  Receive Date: 20071025
  Receipt Date: 20061107
  Transmission Date: 20080405
  Serious: No
  Sender: FDA-Public Use
  Company Number: US-BRISTOL-MYERS SQUIBB COMPANY-13569306

PATIENT
  Age: 72 Year
  Sex: Male
  Weight: 86 kg

DRUGS (3)
  1. METFORMIN HCL [Suspect]
     Indication: DIABETES MELLITUS
     Dosage: TOTAL DAILY DOSE IS 1000-1500MG
     Dates: start: 20051001
  2. INSULIN [Concomitant]
     Indication: DIABETES MELLITUS
     Dosage: 20-22UNITS
  3. PREDNISONE [Concomitant]
     Indication: ASTHENIA
     Dosage: TAPERING FROM 20MG TO 15MG

REACTIONS (3)
  - ASTHENIA [None]
  - PAIN [None]
  - WEIGHT INCREASED [None]
